FAERS Safety Report 22861941 (Version 2)
Quarter: 2023Q4

REPORT INFORMATION
  Report Type: Spontaneous
  Country: US (occurrence: US)
  Receive Date: 20230824
  Receipt Date: 20231023
  Transmission Date: 20240109
  Serious: Yes (Other)
  Sender: FDA-Public Use
  Company Number: US-PFIZER INC-PV202300144245

PATIENT
  Age: 80 Year
  Sex: Male

DRUGS (1)
  1. HEPARIN SODIUM [Suspect]
     Active Substance: HEPARIN SODIUM
     Dosage: 12 UNITS/KG/HR, CONTINUOUS INFUSION
     Dates: start: 20230814, end: 20230818

REACTIONS (2)
  - Rectal haemorrhage [Unknown]
  - Cough [Unknown]
